FAERS Safety Report 18406262 (Version 1)
Quarter: 2020Q4

REPORT INFORMATION
  Report Type: Spontaneous
  Country: US (occurrence: US)
  Receive Date: 20201020
  Receipt Date: 20201020
  Transmission Date: 20210114
  Serious: Yes (Life-Threatening, Other)
  Sender: FDA-Public Use
  Company Number: US-PURDUE-USA-2020-0170481

PATIENT
  Sex: Female

DRUGS (1)
  1. HYDROCODONE BITARTRATE (SIMILAR TO NDA 206627) [Suspect]
     Active Substance: HYDROCODONE BITARTRATE
     Indication: PRODUCT USED FOR UNKNOWN INDICATION
     Dosage: UNK
     Route: 048

REACTIONS (11)
  - Aortic dissection [Unknown]
  - Fibromyalgia [Unknown]
  - Lymphoedema [Unknown]
  - Multi-organ disorder [Unknown]
  - Alopecia [Unknown]
  - Unevaluable event [Unknown]
  - Drug dependence [Unknown]
  - Renal disorder [Unknown]
  - Drug withdrawal syndrome [Unknown]
  - Liver injury [Unknown]
  - Tooth loss [Unknown]
